FAERS Safety Report 20116375 (Version 1)
Quarter: 2021Q4

REPORT INFORMATION
  Report Type: Spontaneous
  Country: KW (occurrence: KW)
  Receive Date: 20211126
  Receipt Date: 20211126
  Transmission Date: 20220303
  Serious: Yes (Other)
  Sender: FDA-Public Use
  Company Number: KW-SUN PHARMACEUTICAL INDUSTRIES LTD-2021RR-318741

PATIENT
  Age: 8 Year
  Sex: Female

DRUGS (2)
  1. FLUOXETINE [Interacting]
     Active Substance: FLUOXETINE HYDROCHLORIDE
     Indication: Anxiety
     Dosage: 40 MILLIGRAM, DAILY
     Route: 065
  2. DULOXETINE [Interacting]
     Active Substance: DULOXETINE
     Indication: Anxiety
     Dosage: 30 MILLIGRAM, DAILY
     Route: 065

REACTIONS (4)
  - Nausea [Unknown]
  - Supraventricular tachyarrhythmia [Unknown]
  - Drug ineffective [Unknown]
  - Drug interaction [Unknown]
